FAERS Safety Report 8605776-5 (Version None)
Quarter: 2012Q3

REPORT INFORMATION
  Report Type: 
  Country: None (occurrence: None)
  Receive Date: 20120820
  Receipt Date: 20120816
  Transmission Date: 20120928
  Serious: No
  Sender: FDA-Public Use
  Company Number: US-PFIZER INC-2012201925

PATIENT
  Age: 58 Year
  Sex: Female
  Weight: 61.224 kg

DRUGS (5)
  1. PRISTIQ [Suspect]
     Indication: GENERALISED ANXIETY DISORDER
     Dosage: 50 MG, DAILY
     Route: 048
  2. ATIVAN [Concomitant]
     Indication: ANXIETY
     Dosage: 0.5 MG, 2X/DAY (ONE TABLET IN AFTERNOON AND ONE IN EVENING)
     Route: 048
  3. PRISTIQ [Suspect]
     Indication: DEPRESSION
  4. REMERON [Concomitant]
     Indication: DEPRESSION
  5. REMERON [Concomitant]
     Indication: SLEEP DISORDER
     Dosage: 15 MG, DAILY
     Route: 048

REACTIONS (1)
  - MEDICATION RESIDUE [None]
